FAERS Safety Report 7228611-9 (Version None)
Quarter: 2011Q1

REPORT INFORMATION
  Report Type: 
  Country: None (occurrence: None)
  Receive Date: 20110117
  Receipt Date: 20110107
  Transmission Date: 20110831
  Serious: No
  Sender: FDA-Public Use
  Company Number: US-BIOGENIDEC-2010BI044699

PATIENT
  Sex: Female

DRUGS (4)
  1. TYSABRI [Suspect]
     Indication: MULTIPLE SCLEROSIS
     Route: 042
     Dates: start: 20100526
  2. AVONEX [Concomitant]
     Route: 030
     Dates: start: 19970319, end: 20070211
  3. TYSABRI [Suspect]
     Route: 042
     Dates: start: 20070803, end: 20081218
  4. AVONEX [Concomitant]
     Indication: MULTIPLE SCLEROSIS
     Route: 030
     Dates: start: 20100201

REACTIONS (4)
  - MULTIPLE SCLEROSIS RELAPSE [None]
  - VEIN DISORDER [None]
  - PHARYNGITIS STREPTOCOCCAL [None]
  - POOR VENOUS ACCESS [None]
